FAERS Safety Report 4933150-1 (Version None)
Quarter: 2006Q1

REPORT INFORMATION
  Report Type: 
  Country: None (occurrence: None)
  Receive Date: 20060301
  Receipt Date: 20060301
  Transmission Date: 20060701
  Serious: Yes (Other)
  Sender: FDA-Public Use
  Company Number: None

PATIENT
  Age: 36 Year
  Sex: Female

DRUGS (1)
  1. MORPHINE [Suspect]
     Indication: CHOLECYSTITIS
     Dosage: 5 MG IV
     Route: 042
     Dates: start: 20051012

REACTIONS (2)
  - ERYTHEMA [None]
  - PRURITUS [None]
